FAERS Safety Report 6944696-9 (Version None)
Quarter: 2010Q3

REPORT INFORMATION
  Report Type: 
  Country: None (occurrence: None)
  Receive Date: 20100827
  Receipt Date: 20100817
  Transmission Date: 20110219
  Serious: Yes (Death, Hospitalization)
  Sender: FDA-Public Use
  Company Number: CN-JNJFOC-20061203227

PATIENT
  Sex: Female
  Weight: 63 kg

DRUGS (4)
  1. ET743 [Suspect]
     Indication: OVARIAN CANCER RECURRENT
     Route: 042
  2. ET743 [Suspect]
     Route: 042
  3. DOXIL [Suspect]
     Indication: OVARIAN CANCER
     Route: 042
  4. DOXIL [Suspect]
     Route: 042

REACTIONS (12)
  - ABDOMINAL DISTENSION [None]
  - BLOOD CREATININE INCREASED [None]
  - DECREASED APPETITE [None]
  - DIARRHOEA [None]
  - FEBRILE NEUTROPENIA [None]
  - HEPATIC FUNCTION ABNORMAL [None]
  - NEUTROPENIA [None]
  - RENAL FAILURE [None]
  - RHABDOMYOLYSIS [None]
  - THROMBOCYTOPENIA [None]
  - UPPER GASTROINTESTINAL HAEMORRHAGE [None]
  - VOMITING [None]
